FAERS Safety Report 5203447-9 (Version None)
Quarter: 2007Q1

REPORT INFORMATION
  Report Type: 
  Country: None (occurrence: None)
  Receive Date: 20070105
  Receipt Date: 20061222
  Transmission Date: 20070707
  Serious: Yes (Hospitalization)
  Sender: FDA-Public Use
  Company Number: 234540

PATIENT
  Age: 68 Year
  Sex: Female
  Weight: 52 kg

DRUGS (16)
  1. HERCEPTIN [Suspect]
     Indication: BREAST CANCER METASTATIC
     Dosage: SEE IMAGE
     Route: 042
     Dates: start: 20031115, end: 20060821
  2. HERCEPTIN [Suspect]
     Indication: BREAST CANCER METASTATIC
     Dosage: SEE IMAGE
     Route: 042
     Dates: start: 20031127, end: 20060821
  3. CAPECITABINE (CAPECITABINE) [Suspect]
     Indication: BREAST CANCER METASTATIC
     Dosage: SEE IMAGE
     Dates: end: 20031202
  4. CAPECITABINE (CAPECITABINE) [Suspect]
     Indication: BREAST CANCER METASTATIC
     Dosage: SEE IMAGE
     Dates: start: 20031127, end: 20040202
  5. DOCETAXEL (DOCETAXEL) [Suspect]
     Indication: BREAST CANCER METASTATIC
     Dosage: SEE IMAGE
     Dates: start: 20031127, end: 20040504
  6. DOCETAXEL (DOCETAXEL) [Suspect]
     Indication: BREAST CANCER METASTATIC
     Dosage: SEE IMAGE
     Dates: end: 20040504
  7. METOPROLOL TARTRATE [Concomitant]
  8. INDAPAMIDE [Concomitant]
  9. SPIRONOLACTONE [Concomitant]
  10. OPIPRAMOL (OPIPRAMOL HYDROCHLORIDE) [Concomitant]
  11. DICLOFENAC SODIUM [Concomitant]
  12. ISOSORBIDE MONONITRATE [Concomitant]
  13. TRIMETAZIDINE (TRIMETAZIDINE) [Concomitant]
  14. ETAMSYLATE (ETHAMSYLATE) [Concomitant]
  15. OMEPRAZOLE [Concomitant]
  16. CLODRONATE (CLODRONIC ACID) [Concomitant]

REACTIONS (2)
  - CORONARY ARTERY DISEASE [None]
  - MYOCARDIAL ISCHAEMIA [None]
